FAERS Safety Report 8339369-4 (Version None)
Quarter: 2012Q2

REPORT INFORMATION
  Report Type: 
  Country: None (occurrence: None)
  Receive Date: 20120507
  Receipt Date: 20120427
  Transmission Date: 20120825
  Serious: Yes (Other)
  Sender: FDA-Public Use
  Company Number: US-US-EMD SERONO, INC.-7073247

PATIENT
  Sex: Female
  Weight: 56 kg

DRUGS (3)
  1. RELPAX [Concomitant]
     Indication: MIGRAINE
  2. BIRTH CONTROL [Concomitant]
     Indication: CONTRACEPTION
     Dates: start: 19860101
  3. REBIF [Suspect]
     Indication: MULTIPLE SCLEROSIS
     Route: 058
     Dates: end: 20100601

REACTIONS (2)
  - TRIGEMINAL NEURALGIA [None]
  - INJECTION SITE HAEMATOMA [None]
